FAERS Safety Report 25483543 (Version 1)
Quarter: 2025Q2

REPORT INFORMATION
  Report Type: Report from Study
  Country: CA (occurrence: CA)
  Receive Date: 20250626
  Receipt Date: 20250626
  Transmission Date: 20250716
  Serious: Yes (Other)
  Sender: IPSEN BIOPHARMACEUTICALS, INC.
  Company Number: CA-IPSEN Group, Research and Development-2025-12414

PATIENT
  Age: 77 Year
  Sex: Male

DRUGS (18)
  1. LANREOTIDE ACETATE [Suspect]
     Active Substance: LANREOTIDE ACETATE
     Indication: Gastroenteropancreatic neuroendocrine tumour disease
     Dosage: DEEP SUBCUTANEOUS
     Route: 058
     Dates: start: 20250115
  2. CIPRALEX [Concomitant]
     Active Substance: ESCITALOPRAM OXALATE
  3. ASPIRIN [Concomitant]
     Active Substance: ASPIRIN
  4. METOPROLOL [Concomitant]
     Active Substance: METOPROLOL
  5. RAMIPRIL [Concomitant]
     Active Substance: RAMIPRIL
  6. FLUPENTIXOL [Concomitant]
     Active Substance: FLUPENTIXOL
  7. ATORVASTATIN [Concomitant]
     Active Substance: ATORVASTATIN
  8. DUTASTERIDE [Concomitant]
     Active Substance: DUTASTERIDE
  9. TAMSULOSIN [Concomitant]
     Active Substance: TAMSULOSIN
  10. ATIVAN [Concomitant]
     Active Substance: LORAZEPAM
  11. VITAMIN B100 COMPLEX [Concomitant]
  12. NITROGLYCERIN [Concomitant]
     Active Substance: NITROGLYCERIN
  13. NAC [Concomitant]
  14. COENZYME Q10 [Concomitant]
     Active Substance: DIETARY SUPPLEMENT\UBIDECARENONE
  15. VITAMIN D3 [Concomitant]
     Active Substance: CHOLECALCIFEROL
  16. MAGNESIUM [Concomitant]
     Active Substance: MAGNESIUM
  17. LECITHIN [Concomitant]
     Active Substance: LECITHIN
  18. VITAMIN C [Concomitant]
     Active Substance: ASCORBIC ACID

REACTIONS (3)
  - Neoplasm malignant [Not Recovered/Not Resolved]
  - Bone density abnormal [Unknown]
  - Hypoaesthesia [Recovered/Resolved]

NARRATIVE: CASE EVENT DATE: 20250101
